APPROVED DRUG PRODUCT: SOAANZ
Active Ingredient: TORSEMIDE
Strength: 40MG
Dosage Form/Route: TABLET;ORAL
Application: N213218 | Product #003
Applicant: SARFEZ PHARMACEUTICALS INC
Approved: Nov 17, 2021 | RLD: Yes | RS: No | Type: RX